FAERS Safety Report 18595633 (Version 1)
Quarter: 2020Q4

REPORT INFORMATION
  Report Type: Report from Study
  Country: US (occurrence: US)
  Receive Date: 20201209
  Receipt Date: 20201209
  Transmission Date: 20210114
  Serious: Yes (Life-Threatening, Hospitalization, Other)
  Sender: FDA-Public Use
  Company Number: US-BRISTOL-MYERS SQUIBB COMPANY-BMS-2020-104099

PATIENT
  Age: 70 Year
  Sex: Female

DRUGS (1)
  1. APIXABAN [Suspect]
     Active Substance: APIXABAN
     Indication: FACTOR V LEIDEN MUTATION
     Dosage: 5 MILLIGRAM, BID
     Route: 048
     Dates: start: 2018, end: 2020

REACTIONS (4)
  - Pneumonia [Unknown]
  - Oesophageal stenosis [Unknown]
  - Internal haemorrhage [Recovering/Resolving]
  - Intentional product use issue [Unknown]

NARRATIVE: CASE EVENT DATE: 202011
